FAERS Safety Report 11140337 (Version 1)
Quarter: 2015Q2

REPORT INFORMATION
  Report Type: Spontaneous
  Country: US (occurrence: US)
  Receive Date: 20150525
  Receipt Date: 20150525
  Transmission Date: 20150821
  Serious: No
  Sender: FDA-Public Use
  Company Number: US-JNJFOC-20141012484

PATIENT
  Sex: Male

DRUGS (1)
  1. RISPERDAL CONSTA [Suspect]
     Active Substance: RISPERIDONE
     Indication: PRODUCT USED FOR UNKNOWN INDICATION
     Route: 030

REACTIONS (6)
  - Syringe issue [Unknown]
  - Accidental exposure to product [Unknown]
  - Drug dose omission [Unknown]
  - Device malfunction [Unknown]
  - Underdose [Unknown]
  - Foreign body [Recovered/Resolved]

NARRATIVE: CASE EVENT DATE: 201410
